FAERS Safety Report 17895250 (Version 1)
Quarter: 2020Q2

REPORT INFORMATION
  Report Type: Spontaneous
  Country: IN (occurrence: IN)
  Receive Date: 20200615
  Receipt Date: 20200615
  Transmission Date: 20200714
  Serious: Yes (Hospitalization, Other)
  Sender: FDA-Public Use
  Company Number: IN-SA-2020SA144881

PATIENT

DRUGS (2)
  1. RIFAMPICIN [Suspect]
     Active Substance: RIFAMPIN
     Indication: TUBERCULOSIS
  2. RIFAMPICIN [Suspect]
     Active Substance: RIFAMPIN
     Indication: LYMPHADENOPATHY
     Dosage: UNK

REACTIONS (7)
  - Hypokalaemia [Recovering/Resolving]
  - Shock [Recovering/Resolving]
  - Acute kidney injury [Recovering/Resolving]
  - Coagulopathy [Recovering/Resolving]
  - Metabolic acidosis [Recovering/Resolving]
  - Coeliac disease [Recovering/Resolving]
  - Diarrhoea [Recovering/Resolving]
